FAERS Safety Report 9461482 (Version 1)
Quarter: 2013Q3

REPORT INFORMATION
  Report Type: Report from Study
  Country: BR (occurrence: BR)
  Receive Date: 20130816
  Receipt Date: 20130816
  Transmission Date: 20140515
  Serious: Yes (Death)
  Sender: FDA-Public Use
  Company Number: PHHY2013BR088113

PATIENT
  Sex: Female

DRUGS (5)
  1. ACLASTA [Suspect]
     Indication: OSTEOPOROSIS
     Dosage: 5 MG, UNK
     Route: 042
     Dates: start: 2010
  2. XARELTO [Concomitant]
     Dosage: UNK UKN, UNK
  3. ANCORON [Concomitant]
     Dosage: UNK UKN, UNK
  4. FORASEQ [Concomitant]
     Dosage: UNK UKN, UNK
  5. DAZOR [Concomitant]
     Dosage: UNK UKN, UNK

REACTIONS (1)
  - Death [Fatal]
